FAERS Safety Report 23960169 (Version 1)
Quarter: 2024Q2

REPORT INFORMATION
  Report Type: Spontaneous
  Country: US (occurrence: None)
  Receive Date: 20240607
  Receipt Date: 20240607
  Transmission Date: 20240716
  Serious: No
  Sender: FDA-Public Use
  Company Number: None

PATIENT
  Age: 67 Year
  Sex: Female
  Weight: 69.75 kg

DRUGS (9)
  1. BIOTENE NOS [Suspect]
     Active Substance: CETYLPYRIDINIUM CHLORIDE OR SODIUM FLUORIDE OR SODIUM MONOFLUOROPHOSPHATE OR GLUCOSE OXIDASE\LACTOFE
     Indication: Dry mouth
     Dosage: FREQUENCY : AS NEEDED ORAL?
     Route: 048
     Dates: start: 20240309, end: 20240605
  2. BIOTENE NOS [Suspect]
     Active Substance: CETYLPYRIDINIUM CHLORIDE OR SODIUM FLUORIDE OR SODIUM MONOFLUOROPHOSPHATE OR GLUCOSE OXIDASE\LACTOFE
  3. BIOTENE NOS [Suspect]
     Active Substance: CETYLPYRIDINIUM CHLORIDE OR SODIUM FLUORIDE OR SODIUM MONOFLUOROPHOSPHATE OR GLUCOSE OXIDASE\LACTOFE
  4. NIFEDIPINE [Concomitant]
     Active Substance: NIFEDIPINE
  5. LEVOTHYROXINE [Concomitant]
     Active Substance: LEVOTHYROXINE\LEVOTHYROXINE SODIUM
  6. CITALOPRAM [Concomitant]
     Active Substance: CITALOPRAM\CITALOPRAM HYDROBROMIDE
  7. VITAMIN E [Concomitant]
     Active Substance: .ALPHA.-TOCOPHEROL
  8. Citrocal plus D3 [Concomitant]
  9. BIOTIN [Concomitant]
     Active Substance: BIOTIN

REACTIONS (3)
  - Stomatitis [None]
  - Oral mucosal erythema [None]
  - Oral discomfort [None]

NARRATIVE: CASE EVENT DATE: 20240507
